FAERS Safety Report 19508532 (Version 1)
Quarter: 2021Q3

REPORT INFORMATION
  Report Type: Spontaneous
  Country: CN (occurrence: CN)
  Receive Date: 20210708
  Receipt Date: 20210708
  Transmission Date: 20211014
  Serious: Yes (Hospitalization, Other)
  Sender: FDA-Public Use
  Company Number: CN-PFIZER INC-2021808025

PATIENT
  Age: 42 Year
  Sex: Male
  Weight: 53.3 kg

DRUGS (14)
  1. AZACITIDINE. [Suspect]
     Active Substance: AZACITIDINE
     Indication: CHEMOTHERAPY
  2. SODIUM CHLORIDE. [Concomitant]
     Active Substance: SODIUM CHLORIDE
     Indication: ACUTE MYELOID LEUKAEMIA
     Dosage: 500 ML, 2X/DAY
     Route: 041
     Dates: start: 20210525, end: 20210525
  3. AZACITIDINE. [Suspect]
     Active Substance: AZACITIDINE
     Indication: MYELOSUPPRESSION
  4. SODIUM CHLORIDE. [Concomitant]
     Active Substance: SODIUM CHLORIDE
     Dosage: 500 ML, 1X/DAY
     Route: 041
     Dates: start: 20210527, end: 20210527
  5. STERILE WATER [Concomitant]
     Active Substance: WATER
     Indication: ACUTE MYELOID LEUKAEMIA
     Dosage: 4 ML, 1X/DAY
     Route: 058
     Dates: start: 20210524, end: 20210530
  6. CYTARABINE. [Suspect]
     Active Substance: CYTARABINE
     Indication: ACUTE MYELOID LEUKAEMIA
     Dosage: 4 G, 2X/DAY
     Route: 041
     Dates: start: 20210525, end: 20210525
  7. CYTARABINE. [Suspect]
     Active Substance: CYTARABINE
     Dosage: 4 G, 2X/DAY
     Route: 041
     Dates: start: 20210527, end: 20210527
  8. CYTARABINE. [Suspect]
     Active Substance: CYTARABINE
     Dosage: 2 G, 2X/DAY
     Route: 041
     Dates: start: 20210529, end: 20210529
  9. AZACITIDINE. [Suspect]
     Active Substance: AZACITIDINE
     Indication: EMPHYSEMA
  10. AZACITIDINE. [Suspect]
     Active Substance: AZACITIDINE
     Indication: PNEUMONIA
  11. AZACITIDINE. [Suspect]
     Active Substance: AZACITIDINE
     Indication: PULMONARY MASS
  12. AZACITIDINE. [Suspect]
     Active Substance: AZACITIDINE
     Indication: ACUTE MYELOID LEUKAEMIA
     Dosage: 0.1 G, 1X/DAY
     Route: 058
     Dates: start: 20210524, end: 20210530
  13. AZACITIDINE. [Suspect]
     Active Substance: AZACITIDINE
     Indication: INTERVERTEBRAL DISC PROTRUSION
  14. SODIUM CHLORIDE. [Concomitant]
     Active Substance: SODIUM CHLORIDE
     Dosage: 500 ML, 2X/DAY
     Route: 041
     Dates: start: 20210529, end: 20210529

REACTIONS (2)
  - Full blood count decreased [Recovering/Resolving]
  - Myelosuppression [Recovering/Resolving]

NARRATIVE: CASE EVENT DATE: 20210601
